FAERS Safety Report 8203755-3 (Version None)
Quarter: 2012Q1

REPORT INFORMATION
  Report Type: 
  Country: None (occurrence: None)
  Receive Date: 20120227
  Receipt Date: 20111128
  Transmission Date: 20120608
  Serious: No
  Sender: FDA-Public Use
  Company Number: 340371

PATIENT
  Age: 36 Year
  Sex: Male

DRUGS (6)
  1. BUSPIRON /00791501/ (HYOSCINE BUTYLBROMIDE, METAMIZOLE SODIUM MONOHYDR [Concomitant]
  2. RISPERDAL [Concomitant]
  3. MIRTAZAPINE [Concomitant]
  4. LITHIUM CARBONATE [Concomitant]
  5. VICTOZA [Suspect]
     Indication: TYPE 2 DIABETES MELLITUS
     Dosage: 1.2 MG, QD, SUBCUTANEOUS
     Route: 058
     Dates: start: 20111001, end: 20111126
  6. OLANZAPINE [Concomitant]

REACTIONS (4)
  - THINKING ABNORMAL [None]
  - PARANOIA [None]
  - FEELING ABNORMAL [None]
  - ANXIETY [None]
